FAERS Safety Report 7112585-5 (Version None)
Quarter: 2010Q4

REPORT INFORMATION
  Report Type: 
  Country: None (occurrence: None)
  Receive Date: 20101119
  Receipt Date: 20100329
  Transmission Date: 20110411
  Serious: No
  Sender: FDA-Public Use
  Company Number: US-TEVA-229890USA

PATIENT
  Sex: Male
  Weight: 81.72 kg

DRUGS (3)
  1. ALBUTEROL SULFATE AUTOHALER [Suspect]
     Dosage: 2 PUFFS
     Route: 055
  2. SERETIDE                           /01420901/ [Concomitant]
  3. PREDNISONE [Concomitant]

REACTIONS (1)
  - DRUG SCREEN POSITIVE [None]
